FAERS Safety Report 5910617-0 (Version None)
Quarter: 2008Q4

REPORT INFORMATION
  Report Type: 
  Country: None (occurrence: None)
  Receive Date: 20081007
  Receipt Date: 20080929
  Transmission Date: 20090506
  Serious: Yes (Other)
  Sender: FDA-Public Use
  Company Number: US-NOVOPROD-278930

PATIENT
  Age: 73 Year
  Sex: Female
  Weight: 63.492 kg

DRUGS (1)
  1. NOVOLOG [Suspect]
     Indication: TYPE 1 DIABETES MELLITUS
     Route: 058

REACTIONS (5)
  - BLOOD GLUCOSE FLUCTUATION [None]
  - DIZZINESS [None]
  - HYPERHIDROSIS [None]
  - LOSS OF CONSCIOUSNESS [None]
  - NAUSEA [None]
